FAERS Safety Report 5836733-X (Version None)
Quarter: 2008Q3

REPORT INFORMATION
  Report Type: 
  Country: None (occurrence: None)
  Receive Date: 20080805
  Receipt Date: 20080723
  Transmission Date: 20090109
  Serious: Yes (Hospitalization)
  Sender: FDA-Public Use
  Company Number: 2008AL004973

PATIENT
  Age: 85 Year
  Sex: Female
  Weight: 45.3597 kg

DRUGS (1)
  1. DIGOXIN [Suspect]
     Indication: HEART RATE IRREGULAR
     Dosage: 0.125MG DAILY PO MANY YEARS
     Route: 048

REACTIONS (4)
  - ANXIETY [None]
  - ARRHYTHMIA [None]
  - CARDIAC DISORDER [None]
  - MALAISE [None]
